FAERS Safety Report 8434040-2 (Version None)
Quarter: 2012Q2

REPORT INFORMATION
  Report Type: 
  Country: None (occurrence: None)
  Receive Date: 20120613
  Receipt Date: 20120530
  Transmission Date: 20120825
  Serious: No
  Sender: FDA-Public Use
  Company Number: US-BAYER-2012-055087

PATIENT
  Sex: Male

DRUGS (4)
  1. ALEVE (CAPLET) [Suspect]
     Indication: BACK PAIN
     Route: 048
  2. ASPIRIN [Concomitant]
     Indication: BACK PAIN
  3. EXTRA STRENGTH TYLENOL [Concomitant]
     Indication: BACK PAIN
  4. ADVIL [Concomitant]
     Indication: BACK PAIN
     Dosage: UNK

REACTIONS (1)
  - BACK PAIN [None]
